FAERS Safety Report 26055444 (Version 1)
Quarter: 2025Q4

REPORT INFORMATION
  Report Type: Report from Study
  Country: US (occurrence: US)
  Receive Date: 20251117
  Receipt Date: 20251117
  Transmission Date: 20260118
  Serious: Yes (Other)
  Sender: ALEXION PHARMACEUTICALS
  Company Number: US-AstraZeneca-CH-00958910A

PATIENT
  Age: 68 Year
  Sex: Female
  Weight: 77.551 kg

DRUGS (24)
  1. DAPAGLIFLOZIN [Suspect]
     Active Substance: DAPAGLIFLOZIN
     Dosage: 10 MILLIGRAM, QD
     Dates: start: 20241125, end: 20250918
  2. CORTICOSTEROID NOS [Concomitant]
     Active Substance: CORTICOSTEROID NOS
     Route: 065
  3. ASCORBIC ACID [Concomitant]
     Active Substance: ASCORBIC ACID
     Dosage: UNK
  4. CETIRIZINE [Concomitant]
     Active Substance: CETIRIZINE HYDROCHLORIDE
     Dosage: 10 MILLIGRAM, QD
  5. CHOLECALCIFEROL [Concomitant]
     Active Substance: CHOLECALCIFEROL
     Dosage: TAKE 1 TABLET BY MOUTH DAILY.
  6. CICLOPIROX [Concomitant]
     Active Substance: CICLOPIROX
     Dosage: UNK
  7. LOTRISONE [Concomitant]
     Active Substance: BETAMETHASONE DIPROPIONATE\CLOTRIMAZOLE
     Dosage: APPLY TO AFFECTED AREA 2 TIMES DAILY. - TOPICAL
  8. CRANBERRY [Concomitant]
     Active Substance: CRANBERRY
     Dosage: TAKE BY MOUTH DAILY. - ORAL
  9. ESTRADIOL [Concomitant]
     Active Substance: ESTRADIOL
     Dosage: INSERT 1 GRAM VAGINALLY TWICE WEEKLY. - VAGINAL
     Route: 065
     Dates: start: 20240613, end: 20250918
  10. FAMOTIDINE [Concomitant]
     Active Substance: FAMOTIDINE
     Dosage: 20 MILLIGRAM, QD
  11. FLUCONAZOLE [Concomitant]
     Active Substance: FLUCONAZOLE
     Dosage: TAKE 1 TABLET (150 MG) BY MOUTH DAILY FOR 3 DAYS.
     Dates: start: 20250918, end: 20250921
  12. KETOCONAZOLE [Concomitant]
     Active Substance: KETOCONAZOLE
     Dosage: APPLY TO AFFECTED AREA DAILY.
  13. LANSOPRAZOLE [Concomitant]
     Active Substance: LANSOPRAZOLE
     Dosage: 30 MILLIGRAM, QD
     Dates: start: 20250902
  14. LOPERAMIDE [Concomitant]
     Active Substance: LOPERAMIDE
     Dosage: TAKE BY MOUTH. - ORAL
  15. LOSARTAN [Concomitant]
     Active Substance: LOSARTAN
     Dosage: 25 MILLIGRAM, QD
     Dates: start: 20241125, end: 20251003
  16. METFORMIN [Concomitant]
     Active Substance: METFORMIN HYDROCHLORIDE
     Dosage: TAKE 2 TABLETS (1,000 MG) BY MOUTH 2 TIMES DAILY WITH MEALS.
  17. FERROUS FUMARATE [Concomitant]
     Active Substance: FERROUS FUMARATE
     Dosage: TAKE 1 TABLET BY MOUTH DAILY.
  18. PRAMIPEXOLE [Concomitant]
     Active Substance: PRAMIPEXOLE
     Dosage: TAKE 1 TABLET (0.125 MG) BY MOUTH DAILY AT BEDTIME.
  19. PROPRANOLOL [Concomitant]
     Active Substance: PROPRANOLOL HYDROCHLORIDE
     Dosage: TAKE 1 TABLET (10 MG) BY MOUTH 2 TIMES DAILY.
     Dates: start: 20241125, end: 20251003
  20. SACCHAROMYCES CEREVISIAE [Concomitant]
     Active Substance: SACCHAROMYCES CEREVISIAE
     Dosage: TAKE BY MOUTH. - ORAL
  21. SIMVASTATIN [Concomitant]
     Active Substance: SIMVASTATIN
     Dosage: TAKE 1 TABLET EVERY DAY WITH SUPPER
  22. SPIRONOLACTONE [Concomitant]
     Active Substance: SPIRONOLACTONE
     Dosage: TAKE 1 TABLET (25 MG) BY MOUTH DAILY.
  23. COENZYME Q10 [Concomitant]
     Active Substance: DIETARY SUPPLEMENT\UBIDECARENONE
     Dosage: TAKE 30 MG BY MOUTH DAILY.
  24. VIBEGRON [Concomitant]
     Active Substance: VIBEGRON
     Dosage: TAKE 75 MG BY MOUTH DAILY.

REACTIONS (10)
  - Hypersensitivity [Recovered/Resolved]
  - Blood glucose decreased [Unknown]
  - Arthralgia [Unknown]
  - Thrombocytopenia [Unknown]
  - Microalbuminuria [Unknown]
  - Type 2 diabetes mellitus [Unknown]
  - Diabetic neuropathy [Unknown]
  - Genital discomfort [Unknown]
  - Genital swelling [Unknown]
  - Cough [Unknown]

NARRATIVE: CASE EVENT DATE: 20250409
